FAERS Safety Report 10770317 (Version 2)
Quarter: 2015Q2

REPORT INFORMATION
  Report Type: Spontaneous
  Country: US (occurrence: US)
  Receive Date: 20150206
  Receipt Date: 20150504
  Transmission Date: 20150821
  Serious: Yes (Life-Threatening, Hospitalization)
  Sender: FDA-Public Use
  Company Number: US-BAYER-2015-018333

PATIENT
  Age: 35 Year
  Sex: Female
  Weight: 51.7 kg

DRUGS (1)
  1. MIRENA [Suspect]
     Active Substance: LEVONORGESTREL
     Dosage: 20 MCG/24HR, CONT
     Route: 015
     Dates: start: 200808, end: 20110419

REACTIONS (9)
  - Uterine perforation [None]
  - Drug ineffective [None]
  - Abdominal pain [None]
  - Pain [None]
  - Scar [None]
  - Injury [None]
  - Back pain [None]
  - General physical health deterioration [None]
  - Pregnancy with contraceptive device [None]

NARRATIVE: CASE EVENT DATE: 20110322
